FAERS Safety Report 9400915 (Version 3)
Quarter: 2013Q3

REPORT INFORMATION
  Report Type: Spontaneous
  Country: JP (occurrence: None)
  Receive Date: 20130711
  Receipt Date: 20130927
  Transmission Date: 20140515
  Serious: Yes (Other)
  Sender: FDA-Public Use
  Company Number: ENT 2013-0117

PATIENT
  Age: 74 Year
  Sex: Male

DRUGS (2)
  1. COMTAN (ENTACAPONE) [Suspect]
     Indication: PARKINSON^S DISEASE
     Route: 048
  2. CRESTOR [Suspect]

REACTIONS (4)
  - Rhabdomyolysis [None]
  - Fall [None]
  - Dehydration [None]
  - Oedema peripheral [None]
